FAERS Safety Report 21649822 (Version 2)
Quarter: 2022Q4

REPORT INFORMATION
  Report Type: Spontaneous
  Country: IT (occurrence: IT)
  Receive Date: 20221128
  Receipt Date: 20221209
  Transmission Date: 20230113
  Serious: Yes (Other)
  Sender: FDA-Public Use
  Company Number: None

PATIENT
  Age: 80 Year
  Sex: Female
  Weight: 70 kg

DRUGS (6)
  1. CARBOPLATIN [Suspect]
     Active Substance: CARBOPLATIN
     Indication: Endometrial cancer
     Route: 065
     Dates: start: 20220701
  2. PACLITAXEL [Suspect]
     Active Substance: PACLITAXEL
     Indication: Uterine neoplasm
     Dosage: CONCENTRATE FOR SOLUTION FOR INJECTION/INFUSION, 80MG FOR 60 MINUTES WEEKLY,
     Route: 065
  3. DEXAMETHASONE [Concomitant]
     Active Substance: DEXAMETHASONE
     Indication: Drug hypersensitivity
     Dosage: 10MG FOR 15 MINUTES
  4. TRIMETON [Concomitant]
     Active Substance: CHLORPHENIRAMINE MALEATE
     Indication: Hypersensitivity
     Dosage: 10MG FOR 15 MINUTES,
  5. FAMOTIDINA [Concomitant]
     Indication: Ulcer
     Dosage: 20MG FOR 20 MINUTES,
  6. ONDANSETRON [Concomitant]
     Active Substance: ONDANSETRON
     Indication: Nausea
     Dosage: 8MG FOR 15 MINUTES, DURATION :   125 DAYS

REACTIONS (6)
  - Lymphopenia [Recovered/Resolved]
  - Leukopenia [Recovered/Resolved]
  - Weight decreased [Recovering/Resolving]
  - Somnolence [Recovering/Resolving]
  - Dry eye [Recovering/Resolving]
  - Paraesthesia [Recovering/Resolving]

NARRATIVE: CASE EVENT DATE: 20220701
